FAERS Safety Report 5135185-5 (Version None)
Quarter: 2006Q4

REPORT INFORMATION
  Report Type: 
  Country: None (occurrence: None)
  Receive Date: 20061026
  Receipt Date: 20061013
  Transmission Date: 20070319
  Serious: Yes (Other)
  Sender: FDA-Public Use
  Company Number: PHBS2006CH16048

PATIENT
  Age: 25 Year
  Sex: Male

DRUGS (1)
  1. RITALIN [Suspect]
     Indication: ATTENTION DEFICIT/HYPERACTIVITY DISORDER
     Dosage: 10-40 MG/D
     Route: 048
     Dates: start: 20040101, end: 20060101

REACTIONS (4)
  - ANXIETY [None]
  - DEPRESSION [None]
  - HALLUCINATION [None]
  - PARANOIA [None]
